FAERS Safety Report 7730649-X (Version None)
Quarter: 2011Q3

REPORT INFORMATION
  Report Type: 
  Country: None (occurrence: None)
  Receive Date: 20110901
  Receipt Date: 20110901
  Transmission Date: 20111222
  Serious: Yes (Hospitalization)
  Sender: FDA-Public Use
  Company Number: None

PATIENT
  Sex: Male
  Weight: 63.9572 kg

DRUGS (13)
  1. LEUCOVORIN CALCIUM [Suspect]
     Indication: OESOPHAGEAL CARCINOMA
     Dosage: 82 WEEKS CYCLE 1-6 NEOADJUVANT
     Dates: start: 20110622, end: 20110817
  2. FLUOROURACIL [Suspect]
     Indication: OESOPHAGEAL CARCINOMA
     Dosage: Q 2 WEEKS CYCLE 1-6 NEOADJUVANT
     Dates: start: 20110622, end: 20110817
  3. DECADRON [Concomitant]
  4. FLUOROURACIL [Suspect]
     Indication: OESOPHAGEAL CARCINOMA
     Dosage: 8 2 WEEKS CYCLE 1-6 NEOADJUVANT
     Dates: start: 20110622, end: 20110817
  5. ALBUTEROL SULFATE AUTOHALER [Concomitant]
  6. ATIVAN [Concomitant]
  7. CLARITIN [Concomitant]
  8. OMEPRAZOLE [Concomitant]
  9. COLACE [Concomitant]
  10. OXALIPLATIN [Suspect]
     Indication: OESOPHAGEAL CARCINOMA
     Dosage: Q 2 WEEKS CYCLE 1-6 NEOADJUVANT
     Dates: start: 20110622, end: 20110817
  11. COMPAZINE [Concomitant]
  12. AVASTIN [Suspect]
     Indication: OESOPHAGEAL CARCINOMA
     Dosage: Q 2 WEEKS CYCLE 1-4 NEOADJUVANT
     Dates: start: 20110622, end: 20110803
  13. ZOFRAN [Concomitant]

REACTIONS (4)
  - DEHYDRATION [None]
  - DIARRHOEA [None]
  - NAUSEA [None]
  - VOMITING [None]
